FAERS Safety Report 17916095 (Version 1)
Quarter: 2020Q2

REPORT INFORMATION
  Report Type: Spontaneous
  Country: US (occurrence: US)
  Receive Date: 20200619
  Receipt Date: 20200619
  Transmission Date: 20200714
  Serious: Yes (Other)
  Sender: FDA-Public Use
  Company Number: US-SHIRE-US202019796

PATIENT
  Sex: Female

DRUGS (1)
  1. MOTEGRITY [Suspect]
     Active Substance: PRUCALOPRIDE SUCCINATE
     Indication: SCLERODERMA
     Dosage: 1 MILLIGRAM, 1X/DAY:QD
     Route: 065

REACTIONS (2)
  - Intentional product use issue [Unknown]
  - Blindness [Unknown]
